FAERS Safety Report 7928771-8 (Version None)
Quarter: 2011Q4

REPORT INFORMATION
  Report Type: 
  Country: None (occurrence: None)
  Receive Date: 20111118
  Receipt Date: 20111104
  Transmission Date: 20120403
  Serious: Yes (Disabling)
  Sender: FDA-Public Use
  Company Number: FR-CELGENEUS-056-21880-11110782

PATIENT
  Sex: Female

DRUGS (3)
  1. DOXORUBICIN HYDROCHLORIDE [Suspect]
     Indication: OVARIAN CANCER
     Dosage: 30 MILLIGRAM/SQ. METER
     Route: 065
     Dates: start: 20111019
  2. REVLIMID [Suspect]
     Indication: OVARIAN CANCER
     Dosage: 15 MILLIGRAM
     Route: 048
     Dates: start: 20111020, end: 20111103
  3. CARBOPLATIN [Suspect]
     Indication: OVARIAN CANCER
     Dosage: 475 MILLIGRAM
     Route: 065
     Dates: start: 20111019

REACTIONS (1)
  - OPTIC NEURITIS [None]
